FAERS Safety Report 4377467-0 (Version None)
Quarter: 2004Q2

REPORT INFORMATION
  Report Type: 
  Country: None (occurrence: None)
  Receive Date: 20040615
  Receipt Date: 20040525
  Transmission Date: 20050107
  Serious: Yes (Other)
  Sender: FDA-Public Use
  Company Number: PHEH2004US05874

PATIENT
  Sex: Female

DRUGS (9)
  1. DIOVAN [Suspect]
     Dosage: UNK
     Route: 048
  2. INDERAL LA [Concomitant]
  3. NORVASK [Concomitant]
  4. CATAPRES-TTS-1 [Concomitant]
  5. LOPID [Concomitant]
  6. WELLBUTRIN [Concomitant]
  7. RISPERDAL [Concomitant]
  8. SYNTHROID [Concomitant]
  9. TOPAMAX [Concomitant]

REACTIONS (3)
  - BLOOD PRESSURE INCREASED [None]
  - FEELING ABNORMAL [None]
  - MIGRAINE [None]
